FAERS Safety Report 9259420 (Version 1)
Quarter: 2013Q2

REPORT INFORMATION
  Report Type: Spontaneous
  Country: US (occurrence: US)
  Receive Date: 20130428
  Receipt Date: 20130428
  Transmission Date: 20140414
  Serious: No
  Sender: FDA-Public Use
  Company Number: US-ASTRAZENECA-2013SE25454

PATIENT
  Age: 69 Year
  Sex: Female

DRUGS (7)
  1. BRILINTA [Suspect]
     Route: 048
     Dates: start: 20130330
  2. LISINOPRIL [Suspect]
     Route: 048
  3. ASA [Concomitant]
     Dosage: 81MG
  4. FISH OIL [Concomitant]
  5. CALCIUM [Concomitant]
  6. LIPITOR [Concomitant]
  7. NITROGLYCERIN [Concomitant]

REACTIONS (2)
  - Abdominal discomfort [Unknown]
  - Headache [Unknown]
